FAERS Safety Report 6697402-X (Version None)
Quarter: 2010Q2

REPORT INFORMATION
  Report Type: 
  Country: None (occurrence: None)
  Receive Date: 20100426
  Receipt Date: 20100417
  Transmission Date: 20101027
  Serious: Yes (Other)
  Sender: FDA-Public Use
  Company Number: US-AMGEN-QUU406956

PATIENT
  Sex: Female

DRUGS (1)
  1. ENBREL [Suspect]
     Indication: PSORIASIS
     Route: 058
     Dates: start: 20080401

REACTIONS (6)
  - INCREASED UPPER AIRWAY SECRETION [None]
  - LYMPHADENOPATHY [None]
  - NASOPHARYNGITIS [None]
  - PALATAL OEDEMA [None]
  - PHARYNGEAL OEDEMA [None]
  - PSORIASIS [None]
